FAERS Safety Report 5283956-7 (Version None)
Quarter: 2007Q1

REPORT INFORMATION
  Report Type: 
  Country: None (occurrence: None)
  Receive Date: 20070327
  Receipt Date: 20070320
  Transmission Date: 20070707
  Serious: Yes (Other)
  Sender: FDA-Public Use
  Company Number: 238620

PATIENT
  Age: 63 Year
  Sex: Female
  Weight: 79.4 kg

DRUGS (6)
  1. XOLAIR [Suspect]
     Indication: ASTHMA
     Dosage: 1/MONTH, SUBCUTANEOUS
     Route: 058
     Dates: start: 20060306
  2. SINGULAIR [Concomitant]
  3. FLONASE [Concomitant]
  4. ADVAIR DISKUS 100/50 [Concomitant]
  5. ZYRTEC [Concomitant]
  6. ALBUTEROL (ALBUTEROL/ALBUTEROL SULFATE) [Concomitant]

REACTIONS (4)
  - ASTHMA [None]
  - LUNG DISORDER [None]
  - PULMONARY FIBROSIS [None]
  - SCAR [None]
